FAERS Safety Report 14139889 (Version 3)
Quarter: 2018Q1

REPORT INFORMATION
  Report Type: Spontaneous
  Country: JP (occurrence: JP)
  Receive Date: 20171030
  Receipt Date: 20180222
  Transmission Date: 20180508
  Serious: Yes (Other)
  Sender: FDA-Public Use
  Company Number: JP-AMGEN-JPNSP2017162553

PATIENT
  Sex: Male

DRUGS (1)
  1. REPATHA [Suspect]
     Active Substance: EVOLOCUMAB
     Indication: HYPERCHOLESTEROLAEMIA
     Dosage: UNK
     Route: 058
     Dates: start: 20170401, end: 2017

REACTIONS (1)
  - Renal impairment [Unknown]

NARRATIVE: CASE EVENT DATE: 2017
